FAERS Safety Report 14528477 (Version 1)
Quarter: 2018Q1

REPORT INFORMATION
  Report Type: Report from Study
  Country: IL (occurrence: IL)
  Receive Date: 20180214
  Receipt Date: 20180214
  Transmission Date: 20180509
  Serious: Yes (Other)
  Sender: FDA-Public Use
  Company Number: IL-AMGEN-ISRSL2018018719

PATIENT
  Age: 74 Year
  Sex: Female

DRUGS (3)
  1. CURCUMIN [Concomitant]
     Active Substance: CURCUMIN
     Indication: JOINT SWELLING
     Dosage: UNK
  2. BREXIN (PIROXICAM BETADEX) [Concomitant]
     Active Substance: PIROXICAM BETADEX
     Indication: JOINT SWELLING
     Dosage: UNK
  3. PROLIA [Suspect]
     Active Substance: DENOSUMAB
     Indication: OSTEOPOROSIS
     Dosage: UNK, Q6MO
     Route: 065
     Dates: start: 2014

REACTIONS (8)
  - Pelvic mass [Unknown]
  - Mass [Unknown]
  - Dental implantation [Unknown]
  - Dental discomfort [Unknown]
  - Gingival bleeding [Unknown]
  - Gait disturbance [Unknown]
  - Toothache [Unknown]
  - Loss of control of legs [Unknown]

NARRATIVE: CASE EVENT DATE: 2016
